FAERS Safety Report 24174299 (Version 1)
Quarter: 2024Q3

REPORT INFORMATION
  Report Type: Spontaneous
  Country: US (occurrence: US)
  Receive Date: 20240805
  Receipt Date: 20240805
  Transmission Date: 20241017
  Serious: No
  Sender: SANOFI AVENTIS
  Company Number: US-SA-SAC20240730001499

PATIENT
  Sex: Female

DRUGS (1)
  1. DUPIXENT [Suspect]
     Active Substance: DUPILUMAB
     Indication: Dermatitis atopic
     Dosage: 300MG; EVERY 2 WEEKS
     Route: 058

REACTIONS (4)
  - Dermatitis atopic [Unknown]
  - Rash [Unknown]
  - Dry skin [Unknown]
  - Skin exfoliation [Unknown]
